FAERS Safety Report 24090592 (Version 2)
Quarter: 2024Q3

REPORT INFORMATION
  Report Type: Spontaneous
  Country: US (occurrence: US)
  Receive Date: 20240715
  Receipt Date: 20240724
  Transmission Date: 20241016
  Serious: No
  Sender: SANOFI AVENTIS
  Company Number: US-SANOFI-02131144

PATIENT
  Age: 55 Year
  Sex: Female

DRUGS (1)
  1. MULTAQ [Suspect]
     Active Substance: DRONEDARONE
     Indication: Product used for unknown indication
     Dosage: 1 DF, QD
     Route: 048

REACTIONS (6)
  - Peripheral swelling [Unknown]
  - Swelling [Unknown]
  - Eye swelling [Unknown]
  - Cough [Unknown]
  - Dyspnoea [Unknown]
  - Pruritus [Unknown]
